FAERS Safety Report 17698850 (Version 1)
Quarter: 2020Q2

REPORT INFORMATION
  Report Type: Spontaneous
  Country: US (occurrence: US)
  Receive Date: 20200423
  Receipt Date: 20200423
  Transmission Date: 20200714
  Serious: Yes (Hospitalization)
  Sender: FDA-Public Use
  Company Number: None

PATIENT
  Age: 57 Year
  Sex: Female
  Weight: 72 kg

DRUGS (1)
  1. CALISTA METHYLPREDNISOLONE TABLETS, USP 4 MG [Suspect]
     Active Substance: METHYLPREDNISOLONE
     Indication: RESPIRATORY TRACT INFECTION
     Dosage: ?          QUANTITY:21 TABLET(S);?
     Dates: start: 20200414, end: 20200419

REACTIONS (7)
  - Withdrawal syndrome [None]
  - Muscle rigidity [None]
  - Pain [None]
  - Nail discolouration [None]
  - Hypertension [None]
  - Feeling hot [None]
  - Tremor [None]

NARRATIVE: CASE EVENT DATE: 20200421
